FAERS Safety Report 15468024 (Version 1)
Quarter: 2018Q4

REPORT INFORMATION
  Report Type: Spontaneous
  Country: US (occurrence: US)
  Receive Date: 20181005
  Receipt Date: 20181005
  Transmission Date: 20190204
  Serious: No
  Sender: FDA-Public Use
  Company Number: US-BAUSCH-BL-2017-026258

PATIENT
  Sex: Female

DRUGS (2)
  1. TIMOLOL. [Suspect]
     Active Substance: TIMOLOL
     Indication: PRODUCT USED FOR UNKNOWN INDICATION
     Dosage: MANY MONTHS PRIOR TO THE DATE OF THIS REPORT
     Route: 047
  2. TIMOLOL. [Suspect]
     Active Substance: TIMOLOL
     Route: 047
     Dates: start: 201708

REACTIONS (1)
  - Lip swelling [Not Recovered/Not Resolved]
